FAERS Safety Report 4458013-X (Version None)
Quarter: 2004Q3

REPORT INFORMATION
  Report Type: 
  Country: None (occurrence: None)
  Receive Date: 20040922
  Receipt Date: 20040908
  Transmission Date: 20050211
  Serious: Yes (Other)
  Sender: FDA-Public Use
  Company Number: JP_040804232

PATIENT
  Age: 60 Year
  Sex: Male

DRUGS (8)
  1. HUMALOG [Suspect]
     Indication: DIABETES MELLITUS
     Dosage: 21 U DAY
     Dates: start: 20031117, end: 20040817
  2. BUFFERIN [Concomitant]
  3. COROHERSER (DILTIAZEM HYDROCHLORIDE) [Concomitant]
  4. NICHISTATE(TICLOPIDINE HYDROCHLORIDE) [Concomitant]
  5. MECOBALAMIN [Concomitant]
  6. BASEN (VOGLIBOSE) [Concomitant]
  7. EURODIN (ESTAZOLAM0 [Concomitant]
  8. AMOBAN (ZOPICLONE) [Concomitant]

REACTIONS (4)
  - BLAST CELLS PRESENT [None]
  - CONDITION AGGRAVATED [None]
  - NAUSEA [None]
  - WHITE BLOOD CELL COUNT INCREASED [None]
